FAERS Safety Report 5005556-6 (Version None)
Quarter: 2006Q2

REPORT INFORMATION
  Report Type: 
  Country: None (occurrence: None)
  Receive Date: 20060515
  Receipt Date: 20060421
  Transmission Date: 20061013
  Serious: Yes (Hospitalization)
  Sender: FDA-Public Use
  Company Number: 6022145

PATIENT
  Age: 64 Year
  Sex: Male

DRUGS (9)
  1. CONCOR 10 (BISOPROLOL FUMARATE) [Suspect]
     Indication: ATRIAL FIBRILLATION
     Dosage: 10,000 MG  (10 MG, 1 IN 1 D) ORAL
     Route: 048
     Dates: start: 20060324, end: 20060330
  2. CONCOR 10 (BISOPROLOL FUMARATE) [Suspect]
     Indication: ATRIAL FLUTTER
     Dosage: 10,000 MG  (10 MG, 1 IN 1 D) ORAL
     Route: 048
     Dates: start: 20060324, end: 20060330
  3. DILTIAZEM HYDROCHLORIDE [Suspect]
     Indication: ATRIAL FIBRILLATION
     Dosage: 180,0000 MG (180 MG, 1 IN 1 D) ORAL
     Route: 048
     Dates: start: 20060324, end: 20060330
  4. DILTIAZEM HYDROCHLORIDE [Suspect]
     Indication: ATRIAL FLUTTER
     Dosage: 180,0000 MG (180 MG, 1 IN 1 D) ORAL
     Route: 048
     Dates: start: 20060324, end: 20060330
  5. SINTROM [Concomitant]
  6. COSAAR (LOSARTAN POTASSIUM) [Concomitant]
  7. TOREM (TORASEMIDE SODIUM) [Concomitant]
  8. LEVOTHYROXINE SODIUM [Concomitant]
  9. SIMVASTATIN [Concomitant]

REACTIONS (1)
  - TOXIC SKIN ERUPTION [None]
